FAERS Safety Report 9819448 (Version 1)
Quarter: 2014Q1

REPORT INFORMATION
  Report Type: Spontaneous
  Country: BR (occurrence: BR)
  Receive Date: 20140115
  Receipt Date: 20140115
  Transmission Date: 20141002
  Serious: Yes (Hospitalization)
  Sender: FDA-Public Use
  Company Number: BR-ASTRAZENECA-2014SE01554

PATIENT
  Age: 73 Year
  Sex: Female

DRUGS (1)
  1. SEROQUEL XRO [Suspect]
     Route: 048

REACTIONS (1)
  - Infarction [Unknown]
